FAERS Safety Report 14365882 (Version 1)
Quarter: 2018Q1

REPORT INFORMATION
  Report Type: Spontaneous
  Country: RO (occurrence: RO)
  Receive Date: 20180109
  Receipt Date: 20180109
  Transmission Date: 20180509
  Serious: Yes (Death, Other)
  Sender: FDA-Public Use
  Company Number: RO-ACCORD-062614

PATIENT
  Age: 33 Year
  Sex: Male

DRUGS (3)
  1. QUETIAPINE. [Suspect]
     Active Substance: QUETIAPINE
  2. PHENOBARBITAL. [Suspect]
     Active Substance: PHENOBARBITAL
  3. VENLAFAXINE/VENLAFAXINE HYDROCHLORIDE [Suspect]
     Active Substance: VENLAFAXINE HYDROCHLORIDE

REACTIONS (5)
  - Myocardial ischaemia [Fatal]
  - Completed suicide [Fatal]
  - Toxicity to various agents [Fatal]
  - Myocardial infarction [Fatal]
  - Left ventricular dysfunction [Fatal]
